FAERS Safety Report 7807517 (Version 3)
Quarter: 2013Q2

REPORT INFORMATION
  Report Type: Spontaneous
  Country: US (occurrence: None)
  Receive Date: 20101130
  Receipt Date: 20121203
  Transmission Date: 20140414
  Serious: Yes (Hospitalization, Other)
  Sender: FDA-Public Use
  Company Number: 2010SP048873

PATIENT
  Age: 24 Year
  Sex: Female
  Weight: 77.11 kg

DRUGS (7)
  1. NUVARING [Suspect]
     Indication: CONTRACEPTION
     Dates: start: 200802, end: 200809
  2. PROPOXYPHENE HYDROCHLORIDE [Concomitant]
  3. EFFEXOR XR [Concomitant]
  4. FLEXERIL [Concomitant]
  5. ALBUTEROL INHALER [Concomitant]
  6. TYLENOL [Concomitant]
  7. EXCEDRIN [Concomitant]

REACTIONS (8)
  - PULMONARY EMBOLISM [None]
  - HYPERCOAGULATION [None]
  - DRUG HYPERSENSITIVITY [None]
  - HEADACHE [None]
  - DEPRESSION [None]
  - ABDOMINAL PAIN [None]
  - NAUSEA [None]
  - VOMITING [None]
